FAERS Safety Report 4502373-8 (Version None)
Quarter: 2004Q4

REPORT INFORMATION
  Report Type: 
  Country: None (occurrence: None)
  Receive Date: 20041110
  Receipt Date: 20041028
  Transmission Date: 20050328
  Serious: Yes (Other)
  Sender: FDA-Public Use
  Company Number: 2004085239

PATIENT
  Age: 69 Year
  Sex: Male

DRUGS (1)
  1. CARDURA XL [Suspect]
     Indication: BENIGN PROSTATIC HYPERPLASIA
     Dosage: 4 MG ( 4 MG, 1 IN 1 D), ORAL
     Route: 048
     Dates: start: 20040101

REACTIONS (2)
  - NODULE [None]
  - PROSTATIC DISORDER [None]
